FAERS Safety Report 7911231-8 (Version None)
Quarter: 2011Q4

REPORT INFORMATION
  Report Type: 
  Country: None (occurrence: None)
  Receive Date: 20111110
  Receipt Date: 20111110
  Transmission Date: 20120403
  Serious: Yes (Hospitalization)
  Sender: FDA-Public Use
  Company Number: None

PATIENT
  Sex: Female

DRUGS (1)
  1. ENBREL [Suspect]
     Indication: RHEUMATOID ARTHRITIS
     Dosage: 50MG QW SQ
     Route: 058
     Dates: start: 20111004, end: 20111102

REACTIONS (8)
  - INJECTION SITE RASH [None]
  - ASTHENIA [None]
  - INJECTION SITE REACTION [None]
  - HEADACHE [None]
  - DIZZINESS [None]
  - INJECTION SITE MASS [None]
  - CHEST PAIN [None]
  - TREMOR [None]
